FAERS Safety Report 9211227 (Version 1)
Quarter: 2013Q2

REPORT INFORMATION
  Report Type: Spontaneous
  Country: US (occurrence: US)
  Receive Date: 20130404
  Receipt Date: 20130404
  Transmission Date: 20140414
  Serious: No
  Sender: FDA-Public Use
  Company Number: US-AMGEN-USASP2013009745

PATIENT
  Age: 55 Year
  Sex: Female
  Weight: 70.3 kg

DRUGS (5)
  1. ENBREL [Suspect]
     Indication: RHEUMATOID ARTHRITIS
     Dosage: 50 MG, QWK
     Route: 058
     Dates: start: 20120308
  2. PLAQUENIL /00072602/ [Suspect]
     Dosage: UNK
     Route: 048
  3. HYDROXYCHLOROQUINE [Suspect]
     Dosage: 200 MG, DAILY 3 TABS
     Route: 048
     Dates: start: 20110412
  4. POTASSIUM CHLORIDE [Concomitant]
     Dosage: 10 MUG, 2 DAILY
  5. LEVOXYL [Concomitant]
     Dosage: 112 MUG, QD
     Route: 048

REACTIONS (4)
  - Laryngitis [Not Recovered/Not Resolved]
  - Arthritis [Unknown]
  - Osteopenia [Unknown]
  - Dysphagia [Unknown]
